FAERS Safety Report 13226530 (Version 1)
Quarter: 2017Q1

REPORT INFORMATION
  Report Type: Spontaneous
  Country: US (occurrence: US)
  Receive Date: 20170213
  Receipt Date: 20170213
  Transmission Date: 20170428
  Serious: No
  Sender: FDA-Public Use
  Company Number: None

PATIENT
  Sex: Male

DRUGS (1)
  1. PROPRANOLOL ORAL LIQUID [Suspect]
     Active Substance: PROPRANOLOL HYDROCHLORIDE
     Dosage: 20MG/5ML 3.5ML PO TID. WHAT WAS FILLED BY XXXXX PHARMACY WAS PROPANOLOL 40MG/5ML 3.5 ML PO TID.?

REACTIONS (3)
  - Drug dispensing error [None]
  - Incorrect dose administered [None]
  - Weight increased [None]

NARRATIVE: CASE EVENT DATE: 2016
